FAERS Safety Report 9955169 (Version 1)
Quarter: 2014Q1

REPORT INFORMATION
  Report Type: Spontaneous
  Country: US (occurrence: US)
  Receive Date: 20140304
  Receipt Date: 20140304
  Transmission Date: 20141002
  Serious: Yes (Hospitalization)
  Sender: FDA-Public Use
  Company Number: US-BRISTOL-MYERS SQUIBB COMPANY-20300182

PATIENT
  Sex: Female

DRUGS (5)
  1. COUMADIN [Suspect]
  2. SOTALOL [Suspect]
  3. ZOLOFT [Suspect]
  4. ATIVAN [Suspect]
  5. REMERON [Concomitant]
     Indication: SLEEP DISORDER

REACTIONS (2)
  - Chest discomfort [Unknown]
  - Anxiety [Unknown]
